FAERS Safety Report 14409246 (Version 1)
Quarter: 2018Q1

REPORT INFORMATION
  Report Type: Spontaneous
  Country: US (occurrence: US)
  Receive Date: 20180119
  Receipt Date: 20180119
  Transmission Date: 20180509
  Serious: No
  Sender: FDA-Public Use
  Company Number: US-ASTRAZENECA-2018SE02632

PATIENT
  Age: 687 Month
  Sex: Male
  Weight: 101.2 kg

DRUGS (8)
  1. VITAMIN C [Concomitant]
     Active Substance: ASCORBIC ACID
     Indication: GENERAL PHYSICAL CONDITION
     Route: 048
     Dates: start: 201404
  2. CALCIUM [Concomitant]
     Active Substance: CALCIUM
     Indication: BONE DISORDER
     Route: 048
     Dates: start: 201404
  3. NEURONTIN [Concomitant]
     Active Substance: GABAPENTIN
     Indication: NEURALGIA
     Route: 048
     Dates: start: 2015
  4. TAGRISSO [Suspect]
     Active Substance: OSIMERTINIB
     Indication: LARGE CELL LUNG CANCER METASTATIC
     Route: 048
     Dates: start: 20160801
  5. FLOMAX [Concomitant]
     Active Substance: TAMSULOSIN HYDROCHLORIDE
     Indication: PROSTATIC DISORDER
     Route: 048
     Dates: start: 2013
  6. XGEVA [Concomitant]
     Active Substance: DENOSUMAB
     Dates: start: 201501, end: 201709
  7. VITAMIN D [Concomitant]
     Active Substance: CHOLECALCIFEROL
     Indication: GENERAL PHYSICAL CONDITION
     Route: 048
     Dates: start: 201404
  8. LYRICA [Concomitant]
     Active Substance: PREGABALIN
     Indication: NEURALGIA
     Route: 048

REACTIONS (3)
  - Myalgia [Not Recovered/Not Resolved]
  - Blood phosphorus decreased [Unknown]
  - Muscle strain [Unknown]

NARRATIVE: CASE EVENT DATE: 20171001
